FAERS Safety Report 5491312-1 (Version None)
Quarter: 2007Q4

REPORT INFORMATION
  Report Type: 
  Country: None (occurrence: None)
  Receive Date: 20071019
  Receipt Date: 20071015
  Transmission Date: 20080405
  Serious: Yes (Other)
  Sender: FDA-Public Use
  Company Number: US-BOEHRINGER INGELHEIM PHARMACEUTICALS, INC.-2007-BP-22951PF

PATIENT
  Sex: Female
  Weight: 49 kg

DRUGS (6)
  1. SPIRIVA [Suspect]
     Indication: EMPHYSEMA
     Route: 055
     Dates: start: 20071012
  2. CHANTIX [Suspect]
     Indication: SMOKING CESSATION THERAPY
     Route: 048
     Dates: start: 20071012
  3. ASPIRIN [Concomitant]
     Route: 048
  4. METOPROLOL [Concomitant]
     Route: 048
  5. LISINOPRIL [Concomitant]
     Route: 048
  6. NEURONTIN [Concomitant]
     Indication: NEUROPATHY
     Route: 048

REACTIONS (5)
  - BOWEL MOVEMENT IRREGULARITY [None]
  - CONSTIPATION [None]
  - MALAISE [None]
  - STOMACH DISCOMFORT [None]
  - WEIGHT DECREASED [None]
